FAERS Safety Report 8809662 (Version 1)
Quarter: 2012Q4

REPORT INFORMATION
  Report Type: 
  Country: US (occurrence: US)
  Receive Date: 20120926
  Receipt Date: 20120926
  Transmission Date: 20130627
  Serious: Yes (Death, Hospitalization, Other)
  Sender: FDA-Public Use
  Company Number: US-ROCHE-1122892

PATIENT
  Sex: Female

DRUGS (6)
  1. AVASTIN [Suspect]
     Indication: RENAL CANCER
     Dosage: dosage 860
     Route: 065
  2. AVASTIN [Suspect]
     Indication: LUNG NEOPLASM MALIGNANT
     Route: 065
     Dates: start: 20081028
  3. AVASTIN [Suspect]
     Route: 065
     Dates: start: 20081125
  4. OXYCODONE [Concomitant]
  5. SUTENT [Concomitant]
  6. TORISEL [Concomitant]
     Dosage: dosage 790
     Route: 065

REACTIONS (4)
  - Death [Fatal]
  - Disease progression [Unknown]
  - Pain [Recovering/Resolving]
  - Pancytopenia [Unknown]
